FAERS Safety Report 11822905 (Version 1)
Quarter: 2015Q4

REPORT INFORMATION
  Report Type: Spontaneous
  Country: US (occurrence: US)
  Receive Date: 20151210
  Receipt Date: 20151210
  Transmission Date: 20160305
  Serious: Yes (Other)
  Sender: FDA-Public Use
  Company Number: US-JNJFOC-20150621202

PATIENT
  Age: 59 Year
  Sex: Male

DRUGS (22)
  1. ALLOPURINOL. [Concomitant]
     Active Substance: ALLOPURINOL
  2. IMBRUVICA [Suspect]
     Active Substance: IBRUTINIB
     Indication: CHRONIC LYMPHOCYTIC LEUKAEMIA
     Route: 048
  3. IMBRUVICA [Suspect]
     Active Substance: IBRUTINIB
     Indication: CHRONIC LYMPHOCYTIC LEUKAEMIA
     Route: 048
     Dates: start: 2013
  4. BENADRYL [Concomitant]
     Active Substance: DIPHENHYDRAMINE HYDROCHLORIDE
  5. RITUXAN [Concomitant]
     Active Substance: RITUXIMAB
  6. ATORVASTATIN [Concomitant]
     Active Substance: ATORVASTATIN
  7. AVODART [Concomitant]
     Active Substance: DUTASTERIDE
  8. CIALIS [Concomitant]
     Active Substance: TADALAFIL
  9. MULTIVITAMIN [Concomitant]
     Active Substance: VITAMINS
  10. ZYRTEC [Concomitant]
     Active Substance: CETIRIZINE HYDROCHLORIDE
  11. TRAZODONE [Concomitant]
     Active Substance: TRAZODONE HYDROCHLORIDE
  12. LATANOPROST. [Concomitant]
     Active Substance: LATANOPROST
  13. FISH OIL [Concomitant]
     Active Substance: FISH OIL
  14. OMEPRAZOLE. [Concomitant]
     Active Substance: OMEPRAZOLE
  15. COMBIGAN [Concomitant]
     Active Substance: BRIMONIDINE TARTRATE\TIMOLOL MALEATE
  16. VERAMYST [Concomitant]
     Active Substance: FLUTICASONE FUROATE
  17. IMBRUVICA [Suspect]
     Active Substance: IBRUTINIB
     Indication: CHRONIC LYMPHOCYTIC LEUKAEMIA
     Route: 048
     Dates: start: 20131119
  18. ASPIRIN. [Concomitant]
     Active Substance: ASPIRIN
  19. IBUPROFEN. [Concomitant]
     Active Substance: IBUPROFEN
  20. ASTELIN [Concomitant]
     Active Substance: AZELASTINE HYDROCHLORIDE
  21. LOSARTAN. [Concomitant]
     Active Substance: LOSARTAN
  22. LACTOBACILLUS [Concomitant]
     Active Substance: LACTOBACILLUS ACIDOPHILUS

REACTIONS (1)
  - Squamous cell carcinoma [Unknown]

NARRATIVE: CASE EVENT DATE: 20131209
